FAERS Safety Report 21499060 (Version 1)
Quarter: 2022Q4

REPORT INFORMATION
  Report Type: Spontaneous
  Country: IN (occurrence: IN)
  Receive Date: 20221024
  Receipt Date: 20221024
  Transmission Date: 20230113
  Serious: Yes (Other)
  Sender: FDA-Public Use
  Company Number: IN-MYLANLABS-2022M1117292

PATIENT
  Age: 55 Year
  Sex: Male

DRUGS (2)
  1. CISPLATIN [Suspect]
     Active Substance: CISPLATIN
     Indication: Marjolin^s ulcer
     Dosage: UNK UNK, CYCLE; SCHEDULED FOR 2 CYCLES
     Route: 065
  2. FLUOROURACIL [Suspect]
     Active Substance: FLUOROURACIL
     Indication: Marjolin^s ulcer
     Dosage: UNK, CYCLE; SCHEDULED FOR 2 CYCLES
     Route: 065

REACTIONS (1)
  - Drug ineffective [Unknown]
